FAERS Safety Report 8690990 (Version 2)
Quarter: 2020Q3

REPORT INFORMATION
  Report Type: Spontaneous
  Country: US (occurrence: US)
  Receive Date: 20120730
  Receipt Date: 20131106
  Transmission Date: 20201104
  Serious: Yes (Hospitalization, Other)
  Sender: FDA-Public Use
  Company Number: US-009507513-1207USA010587

PATIENT
  Age: 79 Year
  Sex: Male

DRUGS (20)
  1. FERROUS SULFATE. [Suspect]
     Active Substance: FERROUS SULFATE
     Dosage: 325 MG, UNK
  2. GEMFIBROZIL. [Suspect]
     Active Substance: GEMFIBROZIL
     Dosage: 600 MG, BID
  3. DOXAZOSIN MESYLATE. [Suspect]
     Active Substance: DOXAZOSIN MESYLATE
     Dosage: 8 MG, UNK
  4. LEVOTHYROXINE SODIUM. [Suspect]
     Active Substance: LEVOTHYROXINE SODIUM
     Dosage: 88 MICROGRAM, UNK
  5. TRAVOPROST. [Suspect]
     Active Substance: TRAVOPROST
  6. ZOCOR [Suspect]
     Active Substance: SIMVASTATIN
     Dosage: 40MG, DAILY FOR 9 MONTHS
  7. AMLODIPINE [Suspect]
     Active Substance: AMLODIPINE BESYLATE
     Dosage: 10 MG, UNK
  8. HYDRALAZINE [Suspect]
     Active Substance: HYDRALAZINE HYDROCHLORIDE
     Dosage: 100 MG  IN DIVIDED DOSES
  9. INSULIN GLARGINE [Suspect]
     Active Substance: INSULIN GLARGINE
     Dosage: 70 U, UNK
  10. FUROSEMIDE. [Suspect]
     Active Substance: FUROSEMIDE
     Dosage: 40 MG, UNK
  11. PRINIVIL [Suspect]
     Active Substance: LISINOPRIL
     Dosage: 20 MG, UNK
  12. ZOCOR [Suspect]
     Active Substance: SIMVASTATIN
     Dosage: 20 MG, QD, FOR 1.5 YEARS
     Route: 048
  13. ERGOCALCIFEROL. [Suspect]
     Active Substance: ERGOCALCIFEROL
     Dosage: 50000 UNK, TWO TIMES A DAY
  14. LACTULOSE. [Suspect]
     Active Substance: LACTULOSE
     Dosage: 20 G, PRN
  15. PROSCAR [Suspect]
     Active Substance: FINASTERIDE
     Dosage: 5 MG, UNK
     Route: 048
  16. SODIUM POLYSTYRENE SULFONATE. [Suspect]
     Active Substance: SODIUM POLYSTYRENE SULFONATE
     Dosage: 30 G, UNK
  17. MIDAZOLAM HYDROCHLORIDE. [Suspect]
     Active Substance: MIDAZOLAM HYDROCHLORIDE
  18. ASPIRIN. [Suspect]
     Active Substance: ASPIRIN
     Dosage: 81 MG, UNK
  19. METOPROLOL TARTRATE. [Suspect]
     Active Substance: METOPROLOL TARTRATE
     Dosage: 200 MG, UNK
  20. MEPERIDINE HYDROCHLORIDE. [Suspect]
     Active Substance: MEPERIDINE HYDROCHLORIDE

REACTIONS (11)
  - Blood pressure systolic increased [Unknown]
  - Myopathy [Unknown]
  - Renal impairment [Unknown]
  - Iron deficiency anaemia [Unknown]
  - Rhabdomyolysis [Unknown]
  - Ileus [Unknown]
  - Tearfulness [Unknown]
  - Respiratory rate increased [Unknown]
  - Gait disturbance [Unknown]
  - Erosive duodenitis [Unknown]
  - Anxiety [Unknown]
